FAERS Safety Report 22370942 (Version 1)
Quarter: 2023Q2

REPORT INFORMATION
  Report Type: Spontaneous
  Country: US (occurrence: US)
  Receive Date: 20230526
  Receipt Date: 20230526
  Transmission Date: 20230721
  Serious: Yes (Other)
  Sender: FDA-Public Use
  Company Number: US-drreddys-LIT/USA/23/0165457

PATIENT
  Age: 51 Year
  Sex: Male

DRUGS (3)
  1. METFORMIN [Suspect]
     Active Substance: METFORMIN HYDROCHLORIDE
     Indication: Diabetic retinal oedema
     Dates: start: 201002
  2. GLYBURIDE [Suspect]
     Active Substance: GLYBURIDE
     Indication: Diabetic retinal oedema
     Dates: start: 201002
  3. BEVACIZUMAB [Suspect]
     Active Substance: BEVACIZUMAB
     Indication: Diabetic retinal oedema
     Dates: start: 201002

REACTIONS (4)
  - Tubulointerstitial nephritis [Unknown]
  - Renal tubular necrosis [Unknown]
  - Intercapillary glomerulosclerosis [Unknown]
  - Product use in unapproved indication [Unknown]
